FAERS Safety Report 10502832 (Version 1)
Quarter: 2014Q4

REPORT INFORMATION
  Report Type: Report from Study
  Country: NZ (occurrence: NZ)
  Receive Date: 20141007
  Receipt Date: 20141007
  Transmission Date: 20150528
  Serious: Yes (Death, Other)
  Sender: FDA-Public Use
  Company Number: NZ-BAXTER-2014BAX059052

PATIENT

DRUGS (3)
  1. ENDOXAN, 1000MG, POWDER FOR INJECTION [Suspect]
     Active Substance: CYCLOPHOSPHAMIDE
     Indication: MYELOMA CAST NEPHROPATHY
     Route: 065
  2. DEXAMETHASONE. [Suspect]
     Active Substance: DEXAMETHASONE
     Indication: MYELOMA CAST NEPHROPATHY
     Route: 065
  3. THALIDOMIDE [Suspect]
     Active Substance: THALIDOMIDE
     Indication: MYELOMA CAST NEPHROPATHY
     Route: 065

REACTIONS (2)
  - Death [Fatal]
  - Drug ineffective [Unknown]
